FAERS Safety Report 8038159-X (Version None)
Quarter: 2012Q1

REPORT INFORMATION
  Report Type: 
  Country: None (occurrence: None)
  Receive Date: 20120111
  Receipt Date: 20111202
  Transmission Date: 20120608
  Serious: No
  Sender: FDA-Public Use
  Company Number: US-AMGEN-USASP2011064003

PATIENT
  Age: 85 Year
  Sex: Female

DRUGS (1)
  1. ENBREL [Suspect]
     Indication: RHEUMATOID ARTHRITIS
     Dosage: 25 MG, 2 TIMES/WK
     Dates: start: 20010101

REACTIONS (11)
  - ARTHRALGIA [None]
  - NAIL DISCOMFORT [None]
  - GINGIVAL SWELLING [None]
  - RHEUMATOID ARTHRITIS [None]
  - PAIN IN EXTREMITY [None]
  - FALL [None]
  - NODULE [None]
  - INJECTION SITE PAIN [None]
  - GINGIVAL ERYTHEMA [None]
  - CATARACT [None]
  - OROPHARYNGEAL PAIN [None]
